FAERS Safety Report 11186672 (Version 1)
Quarter: 2015Q2

REPORT INFORMATION
  Report Type: Other
  Country: IT (occurrence: IT)
  Receive Date: 20150613
  Receipt Date: 20150613
  Transmission Date: 20150821
  Serious: Yes (Life-Threatening, Hospitalization)
  Sender: FDA-Public Use
  Company Number: IT-EMD SERONO-8028506

PATIENT
  Age: 53 Year
  Sex: Female

DRUGS (8)
  1. PROGESTERONE. [Suspect]
     Active Substance: PROGESTERONE
     Indication: HORMONE THERAPY
     Route: 048
     Dates: start: 2005, end: 2013
  2. FOLLITROPIN ALFA [Suspect]
     Active Substance: FOLLITROPIN
     Indication: HORMONE THERAPY
     Dates: start: 2005, end: 2013
  3. ESTRADIOL VALERATE. [Concomitant]
     Active Substance: ESTRADIOL VALERATE
     Indication: HORMONE THERAPY
     Dates: start: 2005, end: 2013
  4. PREDNISONE. [Concomitant]
     Active Substance: PREDNISONE
     Indication: HORMONE THERAPY
     Dates: start: 2005, end: 2013
  5. TRIPTORELIN [Concomitant]
     Active Substance: TRIPTORELIN
     Indication: HORMONE THERAPY
     Dates: start: 2005, end: 2013
  6. MENOTROPIN [Concomitant]
     Indication: HORMONE THERAPY
     Dates: start: 2005, end: 2013
  7. LEUPRORELINE [Concomitant]
     Active Substance: LEUPROLIDE
     Indication: HORMONE THERAPY
     Dates: start: 2005, end: 2013
  8. NADROPARIN CALCIUM [Concomitant]
     Active Substance: NADROPARIN CALCIUM
     Indication: HORMONE THERAPY
     Route: 058
     Dates: start: 2005, end: 2013

REACTIONS (5)
  - Hepatic encephalopathy [Recovered/Resolved]
  - Peliosis hepatis [Recovered/Resolved]
  - Hepatic rupture [Recovered/Resolved]
  - Foetal death [Recovered/Resolved]
  - Haemorrhage in pregnancy [Recovered/Resolved]
